FAERS Safety Report 10740193 (Version 2)
Quarter: 2015Q1

REPORT INFORMATION
  Report Type: Spontaneous
  Country: GB (occurrence: GB)
  Receive Date: 20150127
  Receipt Date: 20150210
  Transmission Date: 20150721
  Serious: Yes (Other)
  Sender: FDA-Public Use
  Company Number: GB-LEO PHARMA-232062

PATIENT
  Age: 60 Year
  Sex: Female

DRUGS (1)
  1. PICATO [Suspect]
     Active Substance: INGENOL MEBUTATE
     Indication: ACTINIC KERATOSIS
     Route: 061
     Dates: start: 20150117, end: 20150118

REACTIONS (3)
  - Application site vesicles [Recovered/Resolved]
  - Underdose [Unknown]
  - Application site reaction [Recovered/Resolved]

NARRATIVE: CASE EVENT DATE: 201501
